FAERS Safety Report 12550578 (Version 2)
Quarter: 2016Q4

REPORT INFORMATION
  Report Type: Spontaneous
  Country: US (occurrence: US)
  Receive Date: 20160712
  Receipt Date: 20161020
  Transmission Date: 20170207
  Serious: Yes (Hospitalization)
  Sender: FDA-Public Use
  Company Number: US-ALLERGAN-1660237US

PATIENT
  Age: 74 Year
  Sex: Female
  Weight: 63.49 kg

DRUGS (6)
  1. METOPROLOL SUCCINATE. [Concomitant]
     Active Substance: METOPROLOL SUCCINATE
     Indication: MYOCARDIAL INFARCTION
     Dosage: 45 MG, QD
     Route: 048
  2. PLAVIX [Concomitant]
     Active Substance: CLOPIDOGREL BISULFATE
     Indication: MYOCARDIAL INFARCTION
     Dosage: 75 MG, UNK
     Route: 048
  3. PREVNAR 13 [Concomitant]
     Active Substance: PNEUMOCOCCAL 13-VALENT CONJUGATE VACCINE
     Indication: PRODUCT USED FOR UNKNOWN INDICATION
     Dosage: UNK UNK, BID
     Dates: start: 20151110
  4. VIBERZI [Suspect]
     Active Substance: ELUXADOLINE
     Indication: DIARRHOEA
     Dosage: 100 MG, BID
     Route: 048
     Dates: start: 20151110
  5. SIMVASTATIN. [Concomitant]
     Active Substance: SIMVASTATIN
     Indication: MYOCARDIAL INFARCTION
     Dosage: 20 MG, QD
     Route: 048
  6. ASPIRIN. [Concomitant]
     Active Substance: ASPIRIN
     Indication: MYOCARDIAL INFARCTION
     Dosage: 81 MG, QD

REACTIONS (7)
  - Off label use [Unknown]
  - Diverticulitis [Not Recovered/Not Resolved]
  - Constipation [Not Recovered/Not Resolved]
  - Bloody discharge [Not Recovered/Not Resolved]
  - Abdominal pain [Not Recovered/Not Resolved]
  - Drug ineffective for unapproved indication [Not Recovered/Not Resolved]
  - Gastrointestinal pain [Not Recovered/Not Resolved]

NARRATIVE: CASE EVENT DATE: 20151110
